FAERS Safety Report 8588759 (Version 6)
Quarter: 2013Q2

REPORT INFORMATION
  Report Type: Spontaneous
  Country: US (occurrence: US)
  Receive Date: 20120531
  Receipt Date: 20130416
  Transmission Date: 20140414
  Serious: Yes (Hospitalization, Disabling, Other)
  Sender: FDA-Public Use
  Company Number: US-MERCK-1205USA04409

PATIENT
  Sex: Female
  Weight: 45.35 kg

DRUGS (3)
  1. FOSAMAX [Suspect]
     Indication: OSTEOPOROSIS
     Dosage: 70 MG, UNK
     Route: 048
     Dates: start: 1996, end: 20080425
  2. BONIVA [Suspect]
     Indication: OSTEOPOROSIS
     Dosage: 150 MG, UNK
     Route: 048
     Dates: start: 20080425, end: 20100215
  3. BONIVA [Suspect]
     Indication: OSTEOPOROSIS PROPHYLAXIS

REACTIONS (20)
  - Femur fracture [Unknown]
  - Fall [Unknown]
  - Internal fixation of fracture [Unknown]
  - Intramedullary rod insertion [Unknown]
  - Haemorrhagic anaemia [Recovered/Resolved]
  - Hyperalbuminaemia [Unknown]
  - Osteoporosis [Not Recovered/Not Resolved]
  - Stress fracture [Not Recovered/Not Resolved]
  - Low turnover osteopathy [Not Recovered/Not Resolved]
  - Femur fracture [Unknown]
  - Patella fracture [Unknown]
  - Hypertension [Not Recovered/Not Resolved]
  - Breast calcifications [Unknown]
  - Radiculitis lumbosacral [Unknown]
  - Intervertebral disc protrusion [Unknown]
  - Intervertebral disc degeneration [Unknown]
  - Intervertebral disc protrusion [Unknown]
  - Hypercholesterolaemia [Unknown]
  - Cholecystectomy [Unknown]
  - Foot fracture [Recovering/Resolving]
